FAERS Safety Report 7536364 (Version 5)
Quarter: 2014Q2

REPORT INFORMATION
  Report Type: Spontaneous
  Country: US (occurrence: US)
  Receive Date: 20100811
  Receipt Date: 20140603
  Transmission Date: 20141212
  Serious: Yes (Life-Threatening, Hospitalization, Disabling, Other)
  Sender: FDA-Public Use
  Company Number: US-BAYER-201030113NA

PATIENT
  Age: 28 Year
  Sex: Female
  Weight: 104.31 kg

DRUGS (10)
  1. YASMIN [Suspect]
     Indication: MENSTRUAL CYCLE MANAGEMENT
     Route: 048
     Dates: start: 200309, end: 20040130
  2. YASMIN [Suspect]
     Indication: ORAL CONTRACEPTION
  3. VERAPAMIL [Concomitant]
     Dosage: UNK
     Dates: start: 20040130
  4. IBUPROFEN [Concomitant]
     Dosage: UNK
     Dates: start: 20040103
  5. PRILOSEC [Concomitant]
     Dosage: UNK
     Dates: start: 20040130
  6. MULTIVITAMIN [Concomitant]
     Dosage: UNK UNK, QD
     Route: 048
  7. ANTIHYPERTENSIVES [Concomitant]
     Indication: HYPERTENSION
  8. ZOFRAN [Concomitant]
     Dosage: UNK
     Dates: start: 20040130
  9. HYDROCORTISONE [Concomitant]
     Indication: HAEMORRHOIDS
  10. LYRICA [Concomitant]

REACTIONS (5)
  - Cerebrovascular accident [None]
  - Cholelithiasis [None]
  - Nervous system disorder [None]
  - Non-alcoholic steatohepatitis [None]
  - Depression [None]
